FAERS Safety Report 5963832-4 (Version None)
Quarter: 2008Q4

REPORT INFORMATION
  Report Type: 
  Country: None (occurrence: None)
  Receive Date: 20081121
  Receipt Date: 20081121
  Transmission Date: 20090506
  Serious: Yes (Other)
  Sender: FDA-Public Use
  Company Number: None

PATIENT
  Sex: Female

DRUGS (2)
  1. MINOCYCLINE HCL [Suspect]
     Indication: ACNE CYSTIC
     Dosage: 100 MG BID
  2. TETRACYCLINE [Suspect]
     Dosage: 500 MG BID

REACTIONS (3)
  - ABDOMINAL DISCOMFORT [None]
  - FUNGAL INFECTION [None]
  - HEADACHE [None]
